FAERS Safety Report 25239795 (Version 1)
Quarter: 2025Q2

REPORT INFORMATION
  Report Type: Spontaneous
  Country: TW (occurrence: TW)
  Receive Date: 20250425
  Receipt Date: 20250425
  Transmission Date: 20250716
  Serious: Yes (Other)
  Sender: MYLAN
  Company Number: TW-MYLANLABS-2025M1035105

PATIENT
  Age: 71 Year
  Sex: Female

DRUGS (4)
  1. CELEBREX [Suspect]
     Active Substance: CELECOXIB
     Indication: Arthralgia
     Dosage: 200 MILLIGRAM, QD (DAILY)
     Dates: start: 20160727, end: 20160802
  2. CELEBREX [Suspect]
     Active Substance: CELECOXIB
     Indication: Rheumatoid arthritis
     Dosage: 200 MILLIGRAM, BID
     Dates: start: 20220314, end: 20220331
  3. CELEBREX [Suspect]
     Active Substance: CELECOXIB
     Indication: Periarthritis
     Dosage: 200 MILLIGRAM, BID
     Dates: start: 20241128
  4. CELEBREX [Suspect]
     Active Substance: CELECOXIB
     Indication: Osteoarthritis
     Dosage: 200 MILLIGRAM, QD
     Dates: start: 20250116, end: 20250220

REACTIONS (2)
  - Oedema peripheral [Recovered/Resolved]
  - Periarthritis [Unknown]

NARRATIVE: CASE EVENT DATE: 20250116
